FAERS Safety Report 8165242-0 (Version None)
Quarter: 2012Q1

REPORT INFORMATION
  Report Type: 
  Country: None (occurrence: None)
  Receive Date: 20120227
  Receipt Date: 20120220
  Transmission Date: 20120608
  Serious: No
  Sender: FDA-Public Use
  Company Number: US-PFIZER INC-2012045491

PATIENT
  Sex: Female
  Weight: 54.422 kg

DRUGS (3)
  1. KLONOPIN [Concomitant]
     Indication: SLEEP DISORDER
     Dosage: 1 MG, DAILY
  2. VFEND [Suspect]
     Indication: FUNGAL INFECTION
     Dosage: 200 MG, DAILY
     Route: 048
     Dates: start: 20110101
  3. ZYRTEC [Concomitant]
     Indication: HYPERSENSITIVITY
     Dosage: 10 MG, DAILY

REACTIONS (3)
  - DRUG INTOLERANCE [None]
  - ABDOMINAL DISCOMFORT [None]
  - NAUSEA [None]
